FAERS Safety Report 5033155-9 (Version None)
Quarter: 2006Q2

REPORT INFORMATION
  Report Type: 
  Country: None (occurrence: None)
  Receive Date: 20060622
  Receipt Date: 20060519
  Transmission Date: 20061013
  Serious: Yes (Hospitalization)
  Sender: FDA-Public Use
  Company Number: US-BRISTOL-MYERS SQUIBB COMPANY-13384342

PATIENT
  Age: 46 Year
  Sex: Male

DRUGS (10)
  1. ERBITUX [Suspect]
     Indication: COLON CANCER STAGE IV
     Route: 042
     Dates: start: 20060220, end: 20060220
  2. MIRTAZAPINE [Concomitant]
  3. FAMOTIDINE [Concomitant]
  4. HEPARIN [Concomitant]
  5. DOXYCYCLINE [Concomitant]
  6. MEGESTROL [Concomitant]
  7. METOPROLOL TARTRATE [Concomitant]
  8. PAROXETINE HCL [Concomitant]
  9. VICODIN [Concomitant]
  10. PROCHLORPERAZINE [Concomitant]

REACTIONS (1)
  - PLEURAL EFFUSION [None]
